FAERS Safety Report 7769097-5 (Version None)
Quarter: 2011Q3

REPORT INFORMATION
  Report Type: 
  Country: None (occurrence: None)
  Receive Date: 20110922
  Receipt Date: 20110228
  Transmission Date: 20111222
  Serious: No
  Sender: FDA-Public Use
  Company Number: US-ASTRAZENECA-2008UW00349

PATIENT
  Age: 615 Month
  Sex: Female
  Weight: 83.9 kg

DRUGS (23)
  1. ZYPREXA [Concomitant]
     Dates: start: 20060101
  2. XANAX [Concomitant]
     Dates: start: 19980101
  3. PAXIL [Concomitant]
     Route: 048
     Dates: end: 20040519
  4. LIPITOR [Concomitant]
     Dates: start: 20041110
  5. RELPAX [Concomitant]
     Route: 048
  6. PREMARIN [Concomitant]
     Dosage: 0.625 - 0.9 MG
     Route: 048
     Dates: start: 19971103
  7. IBUPROFEN [Concomitant]
     Dosage: 200-600 MG
     Route: 048
     Dates: start: 19930803
  8. WELLBUTRIN [Concomitant]
     Dates: start: 20080101
  9. MIDRIN [Concomitant]
     Indication: HEADACHE
     Dosage: 325MG - 65 MG - 100 MG, DAILY AS REQUIRED
     Route: 048
     Dates: start: 20040507
  10. LIPITOR [Concomitant]
     Dosage: 5-40MG
     Route: 048
     Dates: start: 20051227, end: 20060127
  11. THORAZINE [Concomitant]
     Dates: start: 19970101
  12. EFFEXOR [Concomitant]
     Dates: start: 20060101
  13. LEVOTHYROXINE SODIUM [Concomitant]
     Dosage: 0.25-50MCG
     Route: 048
     Dates: start: 20031121
  14. CLONAZEPAM [Concomitant]
     Route: 048
     Dates: start: 20030527, end: 20050523
  15. ISOMETH/APAP [Concomitant]
     Route: 048
     Dates: start: 20040428
  16. SEROQUEL [Suspect]
     Route: 048
     Dates: start: 20020701
  17. EFFEXOR [Concomitant]
     Dates: start: 20041110
  18. METFORMIN [Concomitant]
     Route: 048
     Dates: start: 20051227
  19. CELEBREX [Concomitant]
     Route: 048
     Dates: start: 20030617
  20. SEROQUEL [Suspect]
     Indication: SCHIZOAFFECTIVE DISORDER
     Dosage: 25-600MG
     Route: 048
     Dates: start: 20011231
  21. MECLIZINE [Concomitant]
     Route: 048
     Dates: start: 20050222
  22. VYTORIN [Concomitant]
     Dosage: 10-20 MG
     Route: 048
     Dates: start: 20060802
  23. CYCLOPHOSPHAMIDE [Concomitant]
     Route: 048
     Dates: start: 20040528

REACTIONS (3)
  - OBESITY [None]
  - TYPE 2 DIABETES MELLITUS [None]
  - BLOOD CHOLESTEROL INCREASED [None]
